FAERS Safety Report 7973908-8 (Version None)
Quarter: 2011Q4

REPORT INFORMATION
  Report Type: 
  Country: None (occurrence: None)
  Receive Date: 20111213
  Receipt Date: 20111128
  Transmission Date: 20120403
  Serious: Yes (Death, Other)
  Sender: FDA-Public Use
  Company Number: US-ROCHE-729622

PATIENT

DRUGS (9)
  1. DOXORUBICIN HCL [Suspect]
     Dosage: DAY 1 OF EACH 21 DAY CYCLE, DOSE LEVEL 7
     Route: 042
  2. TEMSIROLIMUS [Suspect]
     Indication: GENITAL NEOPLASM MALIGNANT FEMALE
     Dosage: DAY 1, 8 AND 15 DAY CYCLE, DOSE LEVEL 1-2
     Route: 042
  3. DOXORUBICIN HCL [Suspect]
     Dosage: DOSE LEVEL 2-5
     Route: 042
  4. AVASTIN [Suspect]
     Indication: GENITAL NEOPLASM MALIGNANT FEMALE
     Dosage: DAY 1 OF EACH 21 CYCLE, DOSE LEVEL 1-3
     Route: 042
  5. AVASTIN [Suspect]
     Dosage: DAY 1 OF EACH 21 CYCLE, DOSE LEVEL 4
     Route: 042
  6. TEMSIROLIMUS [Suspect]
     Dosage: DOSE LEVEL 3-7.
     Route: 042
  7. AVASTIN [Suspect]
     Dosage: DAY 1 OF EACH 21 CYCLE, DOSE LEVEL 5-7
     Route: 042
  8. DOXORUBICIN HCL [Suspect]
     Indication: GENITAL NEOPLASM MALIGNANT FEMALE
     Dosage: DAY 1 OF EACH 21 DAY CYCLE, DOSE LEVEL 1
     Route: 042
  9. DOXORUBICIN HCL [Suspect]
     Dosage: DAY 1 OF EACH 21 DAY CYCLE, DOSE LEVEL 6
     Route: 042

REACTIONS (6)
  - UROGENITAL FISTULA [None]
  - INTESTINAL PERFORATION [None]
  - CARDIAC DISORDER [None]
  - THROMBOCYTOPENIA [None]
  - MUCOSAL INFLAMMATION [None]
  - FATIGUE [None]
